FAERS Safety Report 18041296 (Version 2)
Quarter: 2021Q3

REPORT INFORMATION
  Report Type: Spontaneous
  Country: US (occurrence: US)
  Receive Date: 20200719
  Receipt Date: 20210805
  Transmission Date: 20211014
  Serious: No
  Sender: FDA-Public Use
  Company Number: US-LANNETT COMPANY, INC.-US-2020LAN000112

PATIENT
  Age: 77 Year
  Sex: Female

DRUGS (4)
  1. CODEINE SULFATE. [Suspect]
     Active Substance: CODEINE SULFATE
     Indication: VAGUS NERVE DISORDER
     Dosage: 30 MG, EVERY 6 HOURS
     Route: 048
     Dates: start: 202006, end: 202006
  2. CODEINE SULFATE. [Suspect]
     Active Substance: CODEINE SULFATE
     Indication: FUNCTIONAL GASTROINTESTINAL DISORDER
  3. CODEINE SULFATE. [Suspect]
     Active Substance: CODEINE SULFATE
     Indication: ANAL INCONTINENCE
     Dosage: 30 MG, EVERY 6 HOURS
     Route: 048
     Dates: start: 20200501, end: 2020
  4. SPIRONOLACTONE. [Concomitant]
     Active Substance: SPIRONOLACTONE
     Indication: BLOOD PRESSURE INCREASED
     Dosage: UNK
     Route: 065

REACTIONS (9)
  - Therapeutic product effect decreased [Unknown]
  - Defaecation urgency [Not Recovered/Not Resolved]
  - Emotional distress [Not Recovered/Not Resolved]
  - Product formulation issue [Unknown]
  - Social avoidant behaviour [Not Recovered/Not Resolved]
  - Abdominal pain [Not Recovered/Not Resolved]
  - Anal incontinence [Unknown]
  - Diarrhoea [Not Recovered/Not Resolved]
  - Product substitution issue [Unknown]

NARRATIVE: CASE EVENT DATE: 2020
